FAERS Safety Report 15626664 (Version 2)
Quarter: 2018Q4

REPORT INFORMATION
  Report Type: Spontaneous
  Country: US (occurrence: US)
  Receive Date: 20181116
  Receipt Date: 20181214
  Transmission Date: 20190205
  Serious: Yes (Hospitalization)
  Sender: FDA-Public Use
  Company Number: US-ASTRAZENECA-2018SF49565

PATIENT
  Sex: Female
  Weight: 56.2 kg

DRUGS (3)
  1. PULMICORT FLEXHALER [Suspect]
     Active Substance: BUDESONIDE
     Indication: ASTHMA
     Route: 055
  2. PULMICORT FLEXHALER [Suspect]
     Active Substance: BUDESONIDE
     Indication: ASTHMA
     Route: 055
     Dates: start: 201803
  3. QUINAPRIL. [Concomitant]
     Active Substance: QUINAPRIL
     Indication: HYPERTENSION
     Route: 048

REACTIONS (14)
  - Nasal congestion [Not Recovered/Not Resolved]
  - Underdose [Not Recovered/Not Resolved]
  - Decreased appetite [Not Recovered/Not Resolved]
  - Weight increased [Unknown]
  - Hallucination [Recovered/Resolved]
  - Intentional device misuse [Not Recovered/Not Resolved]
  - Asthma [Not Recovered/Not Resolved]
  - Candida infection [Unknown]
  - Product dose omission [Not Recovered/Not Resolved]
  - Fractured sacrum [Recovered/Resolved with Sequelae]
  - Lip exfoliation [Unknown]
  - Device leakage [Recovered/Resolved]
  - Weight decreased [Unknown]
  - Ageusia [Not Recovered/Not Resolved]
